FAERS Safety Report 17497033 (Version 2)
Quarter: 2024Q2

REPORT INFORMATION
  Report Type: Spontaneous
  Country: FI (occurrence: FI)
  Receive Date: 20200304
  Receipt Date: 20240404
  Transmission Date: 20240715
  Serious: Yes (Hospitalization)
  Sender: FDA-Public Use
  Company Number: FI-ROCHE-2520465

PATIENT
  Age: 58 Year
  Sex: Male

DRUGS (4)
  1. OXALIPLATIN [Interacting]
     Active Substance: OXALIPLATIN
     Indication: Rectal cancer metastatic
     Dosage: UNK
     Route: 065
  2. XELODA [Interacting]
     Active Substance: CAPECITABINE
     Indication: Rectal cancer metastatic
     Dosage: UNK
     Route: 065
  3. VALPROATE SODIUM [Interacting]
     Active Substance: VALPROATE SODIUM
     Indication: Bipolar disorder
     Dosage: 1800 MILLIGRAM, QD
     Route: 065
  4. QUETIAPINE [Concomitant]
     Active Substance: QUETIAPINE
     Indication: Bipolar disorder
     Dosage: 400 MILLIGRAM, QD
     Route: 065

REACTIONS (3)
  - Blood albumin decreased [Unknown]
  - Toxicity to various agents [Recovered/Resolved]
  - Drug interaction [Unknown]
